FAERS Safety Report 9660796 (Version 3)
Quarter: 2014Q1

REPORT INFORMATION
  Report Type: Spontaneous
  Country: CO (occurrence: CO)
  Receive Date: 20131031
  Receipt Date: 20140321
  Transmission Date: 20141002
  Serious: Yes (Hospitalization, Other)
  Sender: FDA-Public Use
  Company Number: CO-JNJFOC-20131017340

PATIENT
  Sex: Female

DRUGS (5)
  1. REMICADE [Suspect]
     Indication: PYODERMA GANGRENOSUM
     Route: 042
     Dates: start: 20140307
  2. REMICADE [Suspect]
     Indication: PYODERMA GANGRENOSUM
     Route: 042
     Dates: start: 20131004
  3. REMICADE [Suspect]
     Indication: PYODERMA GANGRENOSUM
     Route: 042
     Dates: start: 20131022
  4. HYDROCORTISONE [Concomitant]
     Indication: PREMEDICATION
     Route: 065
  5. CLEMASTINE [Concomitant]
     Indication: PREMEDICATION
     Route: 065

REACTIONS (6)
  - Respiratory tract oedema [Recovered/Resolved]
  - Oedema mouth [Recovered/Resolved]
  - Infusion related reaction [Recovered/Resolved]
  - Anaphylactic reaction [Not Recovered/Not Resolved]
  - Rash [Recovered/Resolved]
  - Off label use [Not Recovered/Not Resolved]
